FAERS Safety Report 7513809-2 (Version None)
Quarter: 2011Q2

REPORT INFORMATION
  Report Type: 
  Country: None (occurrence: None)
  Receive Date: 20110531
  Receipt Date: 20110525
  Transmission Date: 20111010
  Serious: Yes (Hospitalization, Other)
  Sender: FDA-Public Use
  Company Number: GXKR2011DE01842

PATIENT
  Sex: Female

DRUGS (5)
  1. FOLIC ACID [Concomitant]
     Dosage: 0.8 MG/DAY
     Route: 064
  2. ACETAMINOPHEN [Concomitant]
     Dosage: MATERNAL DOSE: 500 MG/DAY
     Route: 064
     Dates: start: 20091205, end: 20091208
  3. AUGMENTAN ORAL [Concomitant]
     Dosage: MATERNAL DOSE: 2 DF/DAY
     Route: 064
     Dates: start: 20091205, end: 20091206
  4. MIRTAZAPINE [Suspect]
     Dosage: MATERNAL DOSE: 30 MG/DAY UNTIL GW 8.5 AND 15 MG/DAY FOR THE REST OF PREGNANCY
     Route: 064
  5. ESCITALOPRAM [Suspect]
     Dosage: MATERNAL DOSE: 10 MG/DAY, O TO 8.5 GW
     Route: 064

REACTIONS (2)
  - DRUG EXPOSURE DURING PREGNANCY [None]
  - PREMATURE BABY [None]
